FAERS Safety Report 4519616-7 (Version None)
Quarter: 2004Q4

REPORT INFORMATION
  Report Type: 
  Country: None (occurrence: None)
  Receive Date: 20041123
  Receipt Date: 20041108
  Transmission Date: 20050328
  Serious: Yes (Hospitalization)
  Sender: FDA-Public Use
  Company Number: THYM-10352

PATIENT
  Age: 66 Year
  Sex: Male

DRUGS (23)
  1. THYMOGLOBULIN [Suspect]
     Indication: RENAL TRANSPLANT
     Dosage: 100 MG QD IV
     Route: 042
     Dates: start: 20041007, end: 20041007
  2. THYMOGLOBULIN [Suspect]
     Indication: RENAL TRANSPLANT
     Dosage: 150 MG QD IV
     Route: 042
     Dates: start: 20041009, end: 20041009
  3. THYMOGLOBULIN [Suspect]
     Indication: RENAL TRANSPLANT
     Dosage: 150 MG QD IV
     Route: 042
     Dates: start: 20041023, end: 20041023
  4. VERAPAMIL [Concomitant]
  5. MORPHINE [Concomitant]
  6. DIPRIVAN [Concomitant]
  7. FENTANYL [Concomitant]
  8. NPH INSULIN [Concomitant]
  9. METOPROLOL [Concomitant]
  10. CALCIUM ACETATE [Concomitant]
  11. ACETAMINOPHEN [Concomitant]
  12. PROTONIX [Concomitant]
  13. ALBUMIN (HUMAN) [Concomitant]
  14. ARINESP [Concomitant]
  15. PAXIL [Concomitant]
  16. DOPAMINE HCL [Concomitant]
  17. REGULAR ILETIN II [Concomitant]
  18. LASIX [Concomitant]
  19. NYSTATIN [Concomitant]
  20. DOCUSATE SODIUM [Concomitant]
  21. PEPCID [Concomitant]
  22. CELLCEPT [Concomitant]
  23. ANCEF [Concomitant]

REACTIONS (2)
  - NON-CARDIOGENIC PULMONARY OEDEMA [None]
  - RESPIRATORY FAILURE [None]
